FAERS Safety Report 8234096-6 (Version None)
Quarter: 2012Q1

REPORT INFORMATION
  Report Type: 
  Country: None (occurrence: None)
  Receive Date: 20120326
  Receipt Date: 20120326
  Transmission Date: 20120608
  Serious: Yes (Other)
  Sender: FDA-Public Use
  Company Number: None

PATIENT
  Age: 47 Year
  Sex: Female
  Weight: 53.07 kg

DRUGS (1)
  1. REMERON [Suspect]
     Indication: SLEEP DISORDER
     Dosage: 7.5 MG
     Route: 048
     Dates: start: 20120323, end: 20120323

REACTIONS (10)
  - FATIGUE [None]
  - MYALGIA [None]
  - ARTHRALGIA [None]
  - DIZZINESS [None]
  - MIGRAINE [None]
  - THIRST [None]
  - EYELID DISORDER [None]
  - TREMOR [None]
  - HUNGER [None]
  - DYSPNOEA [None]
